FAERS Safety Report 9290325 (Version 1)
Quarter: 2013Q2

REPORT INFORMATION
  Report Type: Spontaneous
  Country: US (occurrence: US)
  Receive Date: 20130515
  Receipt Date: 20130515
  Transmission Date: 20140414
  Serious: No
  Sender: FDA-Public Use
  Company Number: US-PFIZER INC-2013145469

PATIENT
  Age: 48 Year
  Sex: Male
  Weight: 65.76 kg

DRUGS (1)
  1. DETROL LA [Suspect]
     Indication: MICTURITION DISORDER
     Dosage: 4 MG, 1X/DAY
     Dates: start: 2008

REACTIONS (1)
  - Drug ineffective [Unknown]
